FAERS Safety Report 19776839 (Version 4)
Quarter: 2021Q4

REPORT INFORMATION
  Report Type: Spontaneous
  Country: US (occurrence: US)
  Receive Date: 20210901
  Receipt Date: 20211004
  Transmission Date: 20220303
  Serious: Yes (Hospitalization, Other)
  Sender: FDA-Public Use
  Company Number: US-SA-2021SA284698

PATIENT
  Age: 55 Year
  Sex: Female
  Weight: 41 kg

DRUGS (23)
  1. DOCETAXEL [Suspect]
     Active Substance: DOCETAXEL
     Indication: Non-small cell lung cancer metastatic
     Dosage: 55 MG/M2, Q3W
     Route: 042
     Dates: start: 20210621, end: 20210721
  2. DOCETAXEL [Suspect]
     Active Substance: DOCETAXEL
     Dosage: 100 MG, Q3W
     Dates: start: 20210621, end: 20210721
  3. DOCETAXEL [Suspect]
     Active Substance: DOCETAXEL
     Dosage: UNK
  4. DULCOLAX NOS [Suspect]
     Active Substance: BISACODYL OR DOCUSATE SODIUM
     Dosage: UNK
     Dates: start: 20210601
  5. DICLOFENAC SODIUM [Suspect]
     Active Substance: DICLOFENAC SODIUM
     Dosage: UNK
     Dates: start: 20210601
  6. FENTANYL [Suspect]
     Active Substance: FENTANYL
     Dosage: UNK
     Dates: start: 20210610
  7. GABAPENTIN [Suspect]
     Active Substance: GABAPENTIN
     Dosage: UNK
     Dates: start: 20210710
  8. HYDROCORTISONE [Suspect]
     Active Substance: HYDROCORTISONE
     Dosage: UNK
     Dates: start: 20200730
  9. LACTULOSE [Suspect]
     Active Substance: LACTULOSE
     Dosage: UNK
     Dates: start: 20210710
  10. MAGNESIUM [Suspect]
     Active Substance: MAGNESIUM
     Dosage: UNK
     Dates: start: 20200817
  11. POLYETHYLENE GLYCOL 3350 [Suspect]
     Active Substance: POLYETHYLENE GLYCOL 3350
     Dosage: UNK
     Dates: start: 20210601
  12. ONDANSETRON [Suspect]
     Active Substance: ONDANSETRON
     Dosage: UNK
     Dates: start: 20210611
  13. OXYCODONE [Suspect]
     Active Substance: OXYCODONE
     Dosage: UNK
     Dates: start: 20210622
  14. PANTOPRAZOLE [Suspect]
     Active Substance: PANTOPRAZOLE
     Dosage: UNK
     Dates: start: 20191023
  15. MIRTAZAPINE [Suspect]
     Active Substance: MIRTAZAPINE
     Dosage: UNK
     Dates: start: 20210727
  16. SENNA [Suspect]
     Active Substance: SENNA LEAF\SENNOSIDES\SENNOSIDES A AND B
     Dosage: UNK
     Dates: start: 20191023
  17. CALCIUM CARBONATE [Suspect]
     Active Substance: CALCIUM CARBONATE
     Dosage: UNK
     Dates: start: 20210710
  18. ACETAMINOPHEN [Suspect]
     Active Substance: ACETAMINOPHEN
     Dosage: UNK
     Dates: start: 20210710
  19. CIPROFLOXACIN HYDROCHLORIDE [Suspect]
     Active Substance: CIPROFLOXACIN HYDROCHLORIDE
     Indication: Tooth abscess
     Dosage: 500 MG, BID
     Dates: start: 20210810
  20. DENOSUMAB [Suspect]
     Active Substance: DENOSUMAB
     Dosage: UNK
     Dates: start: 20201001
  21. SIMETHICONE (DIMETHICONE) [Suspect]
     Active Substance: DIMETHICONE
     Dosage: UNK
     Dates: start: 20210710
  22. VITAMINS NOS [Suspect]
     Active Substance: VITAMINS
     Dosage: UNK
     Dates: start: 20210710
  23. BISACODYL [Concomitant]
     Active Substance: BISACODYL

REACTIONS (23)
  - Anaemia [Recovered/Resolved]
  - Amylase decreased [Unknown]
  - Blood osmolarity decreased [Unknown]
  - Blood glucose increased [Unknown]
  - Lipase decreased [Unknown]
  - Specific gravity urine decreased [Unknown]
  - Blood albumin decreased [Unknown]
  - Blood alkaline phosphatase increased [Unknown]
  - Blood magnesium decreased [Unknown]
  - Blood sodium decreased [Unknown]
  - Gamma-glutamyltransferase increased [Unknown]
  - Haematocrit decreased [Unknown]
  - Haemoglobin decreased [Unknown]
  - Monocyte count decreased [Unknown]
  - Neutrophil count increased [Unknown]
  - Red cell distribution width increased [Unknown]
  - Reticulocyte count increased [Unknown]
  - White blood cell count increased [Unknown]
  - Decreased appetite [Unknown]
  - Tooth abscess [Unknown]
  - Pyrexia [Unknown]
  - Candida infection [Unknown]
  - Bilirubin conjugated [Unknown]

NARRATIVE: CASE EVENT DATE: 20210810
